FAERS Safety Report 5842557-X (Version None)
Quarter: 2008Q3

REPORT INFORMATION
  Report Type: 
  Country: None (occurrence: None)
  Receive Date: 20080812
  Receipt Date: 20080731
  Transmission Date: 20090109
  Serious: Yes (Hospitalization, Other)
  Sender: FDA-Public Use
  Company Number: US-PFIZER INC-2008064994

PATIENT
  Sex: Male
  Weight: 61.2 kg

DRUGS (3)
  1. DILANTIN [Suspect]
     Indication: CONVULSION
  2. PHENYTOIN [Suspect]
     Indication: CONVULSION
  3. NEURONTIN [Concomitant]

REACTIONS (3)
  - CONVULSION [None]
  - ENDOTRACHEAL INTUBATION [None]
  - MALAISE [None]
